FAERS Safety Report 9543567 (Version 4)
Quarter: 2013Q4

REPORT INFORMATION
  Report Type: Spontaneous
  Country: US (occurrence: US)
  Receive Date: 20130923
  Receipt Date: 20131203
  Transmission Date: 20140711
  Serious: No
  Sender: FDA-Public Use
  Company Number: US-BAYER-2013-114465

PATIENT
  Age: 38 Year
  Sex: Female
  Weight: 80.27 kg

DRUGS (1)
  1. MIRENA [Suspect]
     Indication: CONTRACEPTION
     Dosage: 20 MCG/24HR, CONT
     Route: 015
     Dates: start: 20130814, end: 20130904

REACTIONS (4)
  - Medication error [None]
  - Pregnancy with contraceptive device [None]
  - Menstruation delayed [None]
  - Device misuse [None]
